FAERS Safety Report 22065172 (Version 1)
Quarter: 2023Q1

REPORT INFORMATION
  Report Type: Spontaneous
  Country: CN (occurrence: CN)
  Receive Date: 20230306
  Receipt Date: 20230306
  Transmission Date: 20230418
  Serious: No
  Sender: FDA-Public Use
  Company Number: CN-PFIZER INC-PV202300040274

PATIENT
  Age: 75 Year
  Sex: Male
  Weight: 52.5 kg

DRUGS (2)
  1. PAXLOVID [Suspect]
     Active Substance: NIRMATRELVIR\RITONAVIR
     Indication: Pneumonia
     Dosage: 1 DF, 2X/DAY
     Route: 048
     Dates: start: 20221228, end: 20230105
  2. PAXLOVID [Suspect]
     Active Substance: NIRMATRELVIR\RITONAVIR
     Indication: COVID-19

REACTIONS (4)
  - Hyperlipidaemia [Recovering/Resolving]
  - Asthenia [Recovering/Resolving]
  - Off label use [Unknown]
  - Inappropriate schedule of product administration [Unknown]

NARRATIVE: CASE EVENT DATE: 20221228
